FAERS Safety Report 7250466-7 (Version None)
Quarter: 2011Q1

REPORT INFORMATION
  Report Type: 
  Country: None (occurrence: None)
  Receive Date: 20110128
  Receipt Date: 20110119
  Transmission Date: 20110831
  Serious: Yes (Hospitalization)
  Sender: FDA-Public Use
  Company Number: US-ASTRAZENECA-2011SE03524

PATIENT
  Age: 57 Year
  Sex: Male

DRUGS (2)
  1. SYMBICORT [Suspect]
     Dosage: 1604.5MCG 2 PUFFS BID
     Route: 055
  2. NEXIUM [Suspect]
     Route: 048

REACTIONS (1)
  - ANAEMIA [None]
